APPROVED DRUG PRODUCT: MICAFUNGIN SODIUM
Active Ingredient: MICAFUNGIN SODIUM
Strength: EQ 100MG BASE/VIAL
Dosage Form/Route: INJECTABLE;INTRAVENOUS
Application: A216438 | Product #002 | TE Code: AP
Applicant: BIOCON PHARMA LTD
Approved: May 29, 2024 | RLD: No | RS: No | Type: RX